FAERS Safety Report 11138578 (Version 1)
Quarter: 2015Q2

REPORT INFORMATION
  Report Type: Spontaneous
  Country: BR (occurrence: BR)
  Receive Date: 20150527
  Receipt Date: 20150527
  Transmission Date: 20150821
  Serious: Yes (Other)
  Sender: FDA-Public Use
  Company Number: BR-PFIZER INC-2015166679

PATIENT
  Age: 58 Year
  Sex: Female
  Weight: 98 kg

DRUGS (2)
  1. SELOZOK [Concomitant]
     Active Substance: METOPROLOL SUCCINATE
     Indication: ARRHYTHMIA
     Dosage: ONE TABLET OF UNSPECIFIED DOSAGE PER DAY
     Dates: start: 201411
  2. CITALOR [Suspect]
     Active Substance: ATORVASTATIN
     Dosage: UNK
     Route: 048
     Dates: start: 2005, end: 2011

REACTIONS (1)
  - Spinal disorder [Unknown]
